FAERS Safety Report 23253200 (Version 1)
Quarter: 2023Q4

REPORT INFORMATION
  Report Type: Report from Study
  Country: PL (occurrence: PL)
  Receive Date: 20231202
  Receipt Date: 20231202
  Transmission Date: 20240110
  Serious: Yes (Hospitalization)
  Sender: FDA-Public Use
  Company Number: PL-GRUNENTHAL-2023-284467

PATIENT
  Sex: Female
  Weight: 146.5 kg

DRUGS (8)
  1. CAPSAICIN [Suspect]
     Active Substance: CAPSAICIN
     Indication: Procedural pain
     Dosage: 1 DOSAGE FORM, ONCE
     Route: 061
     Dates: start: 20231017, end: 20231017
  2. CAPSAICIN [Suspect]
     Active Substance: CAPSAICIN
     Indication: Neuralgia
     Dosage: 1 DOSAGE FORM, ONCE
     Route: 061
     Dates: start: 20230314, end: 20230314
  3. HYDROCHLOROTHIAZIDE\METOPROLOL TARTRATE [Concomitant]
     Active Substance: HYDROCHLOROTHIAZIDE\METOPROLOL TARTRATE
     Dosage: UNK
     Route: 065
  4. ALLOPURINOL [Concomitant]
     Active Substance: ALLOPURINOL
     Dosage: UNK
     Route: 065
  5. INDAPAMIDE\PERINDOPRIL ERBUMINE\ROSUVASTATIN CALCIUM [Concomitant]
     Active Substance: INDAPAMIDE\PERINDOPRIL ERBUMINE\ROSUVASTATIN CALCIUM
     Dosage: UNK
     Route: 065
  6. POTASSIUM CHLORIDE [Concomitant]
     Active Substance: POTASSIUM CHLORIDE
     Dosage: UNK
     Route: 065
  7. ASPIRIN [Concomitant]
     Active Substance: ASPIRIN
     Dosage: UNK
     Route: 065
  8. EZEN [Concomitant]
     Dosage: UNK
     Route: 065

REACTIONS (1)
  - Hypertensive crisis [Recovered/Resolved]

NARRATIVE: CASE EVENT DATE: 20231017
